FAERS Safety Report 20173749 (Version 9)
Quarter: 2022Q4

REPORT INFORMATION
  Report Type: Spontaneous
  Country: CA (occurrence: CA)
  Receive Date: 20211212
  Receipt Date: 20221119
  Transmission Date: 20230113
  Serious: Yes (Other)
  Sender: FDA-Public Use
  Company Number: CA-CELLTRION INC.-2021CA016922

PATIENT

DRUGS (15)
  1. INFLECTRA [Suspect]
     Active Substance: INFLIXIMAB-DYYB
     Indication: Crohn^s disease
     Dosage: 400 MG, Q 0, 2, 6 WEEKS, THEN EVERY 8 WEEKS
     Route: 042
     Dates: start: 20171130, end: 20180626
  2. INFLECTRA [Suspect]
     Active Substance: INFLIXIMAB-DYYB
     Dosage: 800 MG, (10 MG/KG) EVERY 8 WEEKS
     Route: 042
     Dates: start: 20180829, end: 20190211
  3. INFLECTRA [Suspect]
     Active Substance: INFLIXIMAB-DYYB
     Dosage: 800 MG, (10 MG/KG) EVERY 6 WEEKS
     Route: 042
     Dates: start: 20190326, end: 20190918
  4. INFLECTRA [Suspect]
     Active Substance: INFLIXIMAB-DYYB
     Dosage: 800 MG, (10 MG/KG) EVERY 4 WEEKS
     Route: 042
     Dates: start: 20191015
  5. INFLECTRA [Suspect]
     Active Substance: INFLIXIMAB-DYYB
     Dosage: 800 MG, (10 MG/KG) EVERY 4 WEEKS
     Route: 042
     Dates: start: 20211103
  6. INFLECTRA [Suspect]
     Active Substance: INFLIXIMAB-DYYB
     Dosage: 800 MG, (10 MG/KG) EVERY 4 WEEKS
     Route: 042
     Dates: start: 20211130
  7. INFLECTRA [Suspect]
     Active Substance: INFLIXIMAB-DYYB
     Dosage: 800 MG, (10 MG/KG) EVERY 4 WEEKS
     Route: 042
     Dates: start: 20211228
  8. INFLECTRA [Suspect]
     Active Substance: INFLIXIMAB-DYYB
     Dosage: 800 MG, (10 MG/KG) EVERY 4 WEEKS
     Route: 042
     Dates: start: 20220125
  9. INFLECTRA [Suspect]
     Active Substance: INFLIXIMAB-DYYB
     Dosage: 800 MG, (10 MG/KG) EVERY 4 WEEKS
     Route: 042
     Dates: start: 20220317
  10. INFLECTRA [Suspect]
     Active Substance: INFLIXIMAB-DYYB
     Dosage: 800 MG, (10 MG/KG) EVERY 4 WEEKS
     Route: 042
     Dates: start: 20220705
  11. INFLECTRA [Suspect]
     Active Substance: INFLIXIMAB-DYYB
     Dosage: 800 MG, (10 MG/KG) EVERY 4 WEEKS
     Route: 042
     Dates: start: 20220819
  12. INFLECTRA [Suspect]
     Active Substance: INFLIXIMAB-DYYB
     Dosage: 800 MG, (10 MG/KG) EVERY 4 WEEKS
     Route: 042
     Dates: start: 20220915
  13. INFLECTRA [Suspect]
     Active Substance: INFLIXIMAB-DYYB
     Dosage: 800 MG, (10 MG/KG) EVERY 4 WEEKS
     Route: 042
     Dates: start: 20221109
  14. AZATHIOPRINE [Concomitant]
     Active Substance: AZATHIOPRINE
     Dosage: 150 MG, 1X/DAY
     Route: 048
  15. PREDNISONE [Concomitant]
     Active Substance: PREDNISONE
     Dosage: 40 MG,UNKNOWN FREQUENCY

REACTIONS (12)
  - Bile duct stone [Unknown]
  - Off label use [Unknown]
  - Off label use [Unknown]
  - Intentional product use issue [Unknown]
  - Inappropriate schedule of product administration [Unknown]
  - Exposure to SARS-CoV-2 [Unknown]
  - Blood pressure increased [Unknown]
  - Pyrexia [Unknown]
  - Myalgia [Unknown]
  - Pain [Unknown]
  - Influenza [Unknown]
  - COVID-19 [Unknown]

NARRATIVE: CASE EVENT DATE: 20190326
